FAERS Safety Report 9308201 (Version 1)
Quarter: 2013Q2

REPORT INFORMATION
  Report Type: Spontaneous
  Country: US (occurrence: US)
  Receive Date: 20130524
  Receipt Date: 20130524
  Transmission Date: 20140414
  Serious: Yes (Death, Other)
  Sender: FDA-Public Use
  Company Number: US-ABBOTT-13P-163-1092721-00

PATIENT
  Sex: Female

DRUGS (2)
  1. DIVALPROEX SODIUM [Suspect]
     Indication: PRODUCT USED FOR UNKNOWN INDICATION
  2. RISPERIDONE [Suspect]
     Indication: PRODUCT USED FOR UNKNOWN INDICATION

REACTIONS (6)
  - Death [Fatal]
  - Fatigue [Unknown]
  - Lethargy [Unknown]
  - Blood pressure increased [Unknown]
  - Oedema peripheral [Unknown]
  - Dementia [Unknown]
